FAERS Safety Report 16072811 (Version 1)
Quarter: 2019Q1

REPORT INFORMATION
  Report Type: Spontaneous
  Country: TR (occurrence: TR)
  Receive Date: 20190314
  Receipt Date: 20190314
  Transmission Date: 20190418
  Serious: Yes (Other)
  Sender: FDA-Public Use
  Company Number: TR-JNJFOC-20190306517

PATIENT
  Age: 40 Year
  Sex: Female

DRUGS (3)
  1. SULPHASALAZINE [Suspect]
     Active Substance: SULFASALAZINE
     Indication: ANKYLOSING SPONDYLITIS
     Route: 065
  2. INFLIXIMAB, RECOMBINANT [Suspect]
     Active Substance: INFLIXIMAB
     Indication: ANKYLOSING SPONDYLITIS
     Route: 042
  3. INDOMETHACIN. [Suspect]
     Active Substance: INDOMETHACIN
     Indication: ANKYLOSING SPONDYLITIS
     Route: 065

REACTIONS (1)
  - Focal segmental glomerulosclerosis [Recovering/Resolving]
